FAERS Safety Report 4620422-3 (Version None)
Quarter: 2005Q1

REPORT INFORMATION
  Report Type: 
  Country: None (occurrence: None)
  Receive Date: 20050321
  Receipt Date: 20050321
  Transmission Date: 20050727
  Serious: Yes (Hospitalization, Other)
  Sender: FDA-Public Use
  Company Number: None

PATIENT
  Age: 43 Year
  Sex: Female

DRUGS (8)
  1. DEPAKENE [Suspect]
     Indication: BIPOLAR I DISORDER
     Dosage: PO 1000 MG HS 500 MG AM; PO 750 NG  HS 500 MG AM
     Route: 048
     Dates: start: 20050127, end: 20050217
  2. DEPAKENE [Suspect]
     Indication: BIPOLAR I DISORDER
     Dosage: PO 1000 MG HS 500 MG AM; PO 750 NG  HS 500 MG AM
     Route: 048
     Dates: start: 20050217, end: 20050223
  3. SEROQUEL [Concomitant]
  4. ZYPREXA [Concomitant]
  5. COGENTIN [Concomitant]
  6. RISPERDAL [Concomitant]
  7. PROLIXIN [Concomitant]
  8. HALDOL [Concomitant]

REACTIONS (6)
  - AMMONIA INCREASED [None]
  - BIPOLAR I DISORDER [None]
  - CONDITION AGGRAVATED [None]
  - CONFUSIONAL STATE [None]
  - DRUG LEVEL INCREASED [None]
  - SEDATION [None]
